FAERS Safety Report 26052052 (Version 1)
Quarter: 2025Q4

REPORT INFORMATION
  Report Type: Spontaneous
  Country: US (occurrence: US)
  Receive Date: 20251117
  Receipt Date: 20251117
  Transmission Date: 20260118
  Serious: No
  Sender: ALVOGEN
  Company Number: US-ALVOGEN-2025096565

PATIENT
  Sex: Female

DRUGS (2)
  1. TERIPARATIDE [Suspect]
     Active Substance: TERIPARATIDE
     Indication: Osteoporosis
     Dosage: PRESCRIPTION NUMBER 0010395427?EXPIRATION: UU-OCT-2025?250UG/ML
     Route: 058
     Dates: start: 20250325
  2. TERIPARATIDE [Suspect]
     Active Substance: TERIPARATIDE
     Indication: Osteoporosis
     Dosage: PREVIOUS PEN
     Route: 058

REACTIONS (9)
  - Device malfunction [Unknown]
  - Device operational issue [Unknown]
  - Device physical property issue [Unknown]
  - Device issue [Unknown]
  - Device use issue [Unknown]
  - Wrong technique in product usage process [Unknown]
  - Product use issue [Unknown]
  - Product dose omission issue [Unknown]
  - Device defective [Unknown]

NARRATIVE: CASE EVENT DATE: 20250101
